FAERS Safety Report 8112056-3 (Version None)
Quarter: 2011Q4

REPORT INFORMATION
  Report Type: 
  Country: None (occurrence: None)
  Receive Date: 20111223
  Receipt Date: 20110919
  Transmission Date: 20120403
  Serious: Yes (Other)
  Sender: FDA-Public Use
  Company Number: PHEH2011US04537

PATIENT
  Sex: Female

DRUGS (2)
  1. FEMARA [Suspect]
  2. SYNTHROID [Concomitant]

REACTIONS (13)
  - FAECES DISCOLOURED [None]
  - SWOLLEN TONGUE [None]
  - DISORIENTATION [None]
  - MALAISE [None]
  - INSOMNIA [None]
  - DYSPNOEA [None]
  - WEIGHT INCREASED [None]
  - CONSTIPATION [None]
  - MYOCARDIAL INFARCTION [None]
  - DYSPHAGIA [None]
  - HEADACHE [None]
  - PRESYNCOPE [None]
  - BURN OESOPHAGEAL [None]
